FAERS Safety Report 7448678-2 (Version None)
Quarter: 2011Q2

REPORT INFORMATION
  Report Type: 
  Country: None (occurrence: None)
  Receive Date: 20110429
  Receipt Date: 20100708
  Transmission Date: 20111010
  Serious: No
  Sender: FDA-Public Use
  Company Number: US-ASTRAZENECA-2010SE31812

PATIENT
  Sex: Female
  Weight: 69.9 kg

DRUGS (4)
  1. CELEBREX [Concomitant]
  2. VITAMINS [Concomitant]
  3. NEXIUM [Suspect]
     Route: 048
  4. RESTASIS [Concomitant]

REACTIONS (3)
  - DRY EYE [None]
  - DYSPHONIA [None]
  - VISUAL IMPAIRMENT [None]
